FAERS Safety Report 18158231 (Version 1)
Quarter: 2020Q3

REPORT INFORMATION
  Report Type: Spontaneous
  Country: MX (occurrence: MX)
  Receive Date: 20200817
  Receipt Date: 20200817
  Transmission Date: 20201103
  Serious: Yes (Other)
  Sender: FDA-Public Use
  Company Number: MX-PFIZER INC-2020315299

PATIENT
  Age: 58 Year
  Sex: Male

DRUGS (1)
  1. CHAMPIX [Suspect]
     Active Substance: VARENICLINE TARTRATE
     Indication: SMOKING CESSATION THERAPY
     Dosage: 1 DF, DAILY
     Dates: start: 2007

REACTIONS (7)
  - Ventricular tachycardia [Unknown]
  - Influenza [Unknown]
  - Vomiting [Unknown]
  - Thyroid disorder [Unknown]
  - Weight decreased [Unknown]
  - Renal disorder [Unknown]
  - Diarrhoea [Unknown]

NARRATIVE: CASE EVENT DATE: 2007
